FAERS Safety Report 5546650-0 (Version None)
Quarter: 2007Q4

REPORT INFORMATION
  Report Type: 
  Country: None (occurrence: None)
  Receive Date: 20071211
  Receipt Date: 20070215
  Transmission Date: 20080405
  Serious: No
  Sender: FDA-Public Use
  Company Number: US-AMGEN-KDL207131

PATIENT
  Sex: Male

DRUGS (1)
  1. ENBREL [Suspect]
     Indication: RHEUMATOID ARTHRITIS
     Route: 058
     Dates: start: 20061218

REACTIONS (6)
  - ARTHRALGIA [None]
  - CONTUSION [None]
  - FORMICATION [None]
  - NEUROPATHY PERIPHERAL [None]
  - PAIN [None]
  - SENSORY DISTURBANCE [None]
